FAERS Safety Report 9059401 (Version 1)
Quarter: 2013Q1

REPORT INFORMATION
  Report Type: Spontaneous
  Country: GB (occurrence: GB)
  Receive Date: 20130211
  Receipt Date: 20130211
  Transmission Date: 20140127
  Serious: Yes (Hospitalization)
  Sender: FDA-Public Use
  Company Number: GB-GLAXOSMITHKLINE-B0865099A

PATIENT
  Sex: Female

DRUGS (2)
  1. AVANDAMET [Suspect]
     Indication: TYPE 2 DIABETES MELLITUS
     Route: 048
     Dates: start: 2005, end: 201005
  2. IRON TABLETS [Concomitant]

REACTIONS (3)
  - Cardiac pacemaker insertion [Unknown]
  - Bradycardia [Unknown]
  - Anaemia [Unknown]
